FAERS Safety Report 14130481 (Version 2)
Quarter: 2018Q1

REPORT INFORMATION
  Report Type: Report from Study
  Country: US (occurrence: US)
  Receive Date: 20171026
  Receipt Date: 20180123
  Transmission Date: 20180508
  Serious: No
  Sender: FDA-Public Use
  Company Number: US-AMGEN-USASL2017146910

PATIENT
  Age: 62 Year
  Sex: Male

DRUGS (2)
  1. REPATHA [Suspect]
     Active Substance: EVOLOCUMAB
     Indication: HYPERCHOLESTEROLAEMIA
  2. REPATHA [Suspect]
     Active Substance: EVOLOCUMAB
     Indication: BLOOD CHOLESTEROL INCREASED
     Dosage: 140 MG, Q2WK
     Route: 065

REACTIONS (8)
  - Dyspnoea [Unknown]
  - Influenza [Recovered/Resolved]
  - Red blood cell count increased [Not Recovered/Not Resolved]
  - Hypertension [Unknown]
  - Muscle fatigue [Recovered/Resolved]
  - Intentional product misuse [Unknown]
  - Cardiac disorder [Unknown]
  - Blood creatine phosphokinase increased [Unknown]
